FAERS Safety Report 11257811 (Version 1)
Quarter: 2015Q3

REPORT INFORMATION
  Report Type: Report from Study
  Country: US (occurrence: US)
  Receive Date: 20150710
  Receipt Date: 20150710
  Transmission Date: 20151125
  Serious: No
  Sender: FDA-Public Use
  Company Number: US-ABBVIE-15P-163-1381083-00

PATIENT
  Age: 77 Year
  Sex: Female

DRUGS (1)
  1. DUOPA [Suspect]
     Active Substance: CARBIDOPA\LEVODOPA
     Indication: PARKINSON^S DISEASE
     Route: 050
     Dates: start: 201504

REACTIONS (18)
  - Disturbance in attention [Recovered/Resolved]
  - Tremor [Recovered/Resolved]
  - Stoma site cellulitis [Recovering/Resolving]
  - Catheter site pain [Recovered/Resolved]
  - Stoma site pain [Not Recovered/Not Resolved]
  - Dyskinesia [Recovering/Resolving]
  - Drug effect decreased [Unknown]
  - Pain [Recovered/Resolved]
  - Pollakiuria [Unknown]
  - Abasia [Recovered/Resolved]
  - Device leakage [Recovered/Resolved]
  - Device issue [Recovered/Resolved]
  - Catheter site discharge [Not Recovered/Not Resolved]
  - Stoma site infection [Not Recovered/Not Resolved]
  - Stoma site erythema [Not Recovered/Not Resolved]
  - Device connection issue [Recovered/Resolved]
  - Back pain [Recovered/Resolved]
  - Drug ineffective [Unknown]

NARRATIVE: CASE EVENT DATE: 201504
